FAERS Safety Report 17478915 (Version 2)
Quarter: 2020Q1

REPORT INFORMATION
  Report Type: Spontaneous
  Country: DE (occurrence: DE)
  Receive Date: 20200228
  Receipt Date: 20200320
  Transmission Date: 20200409
  Serious: Yes (Other)
  Sender: FDA-Public Use
  Company Number: NVSC2020DE042294

PATIENT
  Age: 71 Year
  Sex: Female

DRUGS (2)
  1. CIBACEN [Suspect]
     Active Substance: BENAZEPRIL HYDROCHLORIDE
     Dosage: 15 MILLIGRAM
     Route: 048
     Dates: start: 20191115, end: 20191118
  2. CIBACEN [Suspect]
     Active Substance: BENAZEPRIL HYDROCHLORIDE
     Indication: BLOOD PRESSURE ABNORMAL
     Dosage: 5 MG, TID (3X5 MG TABLETS HAVING PRESCRIBED)
     Route: 048
     Dates: start: 19980101

REACTIONS (2)
  - Tremor [Recovering/Resolving]
  - Dizziness [Recovering/Resolving]

NARRATIVE: CASE EVENT DATE: 20191115
